FAERS Safety Report 10519755 (Version 1)
Quarter: 2014Q4

REPORT INFORMATION
  Report Type: Spontaneous
  Country: US (occurrence: None)
  Receive Date: 20141014
  Receipt Date: 20141014
  Transmission Date: 20150528
  Serious: Yes (Hospitalization)
  Sender: FDA-Public Use
  Company Number: None

PATIENT
  Age: 86 Year
  Sex: Female
  Weight: 66 kg

DRUGS (1)
  1. WARFARIN [Suspect]
     Active Substance: WARFARIN
     Indication: DEEP VEIN THROMBOSIS
     Dates: end: 20141007

REACTIONS (4)
  - Shock haemorrhagic [None]
  - Gastrointestinal haemorrhage [None]
  - International normalised ratio increased [None]
  - Gastric haemorrhage [None]

NARRATIVE: CASE EVENT DATE: 20141007
